FAERS Safety Report 23949507 (Version 3)
Quarter: 2024Q3

REPORT INFORMATION
  Report Type: Report from Study
  Country: JP (occurrence: JP)
  Receive Date: 20240607
  Receipt Date: 20240920
  Transmission Date: 20241016
  Serious: Yes (Death)
  Sender: MERZ
  Company Number: JP-teijin-202401860_XEO_P_1

PATIENT
  Age: 85 Year
  Sex: Female

DRUGS (14)
  1. XEOMIN [Suspect]
     Active Substance: INCOBOTULINUMTOXINA
     Indication: Muscle spasticity
     Dosage: 400 025
     Route: 030
     Dates: start: 20231005, end: 20231005
  2. XEOMIN [Suspect]
     Active Substance: INCOBOTULINUMTOXINA
     Dosage: 400 025
     Route: 030
     Dates: start: 20230601, end: 20230601
  3. DONEPEZIL HYDROCHLORIDE [Concomitant]
     Active Substance: DONEPEZIL HYDROCHLORIDE
     Indication: Dementia Alzheimer^s type
     Dosage: 5 MG
     Route: 048
     Dates: end: 20231104
  4. AZILECT [Concomitant]
     Active Substance: RASAGILINE MESYLATE
     Indication: Parkinson^s disease
     Dosage: 0.5 MG
     Route: 048
     Dates: end: 20231104
  5. EPERISONE HYDROCHLORIDE [Concomitant]
     Active Substance: EPERISONE HYDROCHLORIDE
     Dosage: 75 MG
     Route: 048
     Dates: end: 20231104
  6. MAGNESIUM OXIDE [Concomitant]
     Active Substance: MAGNESIUM OXIDE
     Dosage: 660 MG
     Route: 048
     Dates: end: 20231104
  7. STALEVO [Concomitant]
     Active Substance: CARBIDOPA\ENTACAPONE\LEVODOPA
     Dosage: 100 MG
     Route: 048
     Dates: end: 20231104
  8. MOSAPRIDE CITRATE [Concomitant]
     Active Substance: MOSAPRIDE CITRATE
     Dosage: 15 MG
     Route: 048
     Dates: end: 20231104
  9. ZONISAMIDE [Concomitant]
     Active Substance: ZONISAMIDE
     Dosage: 25 MG
     Route: 048
  10. ACETAMINOPHEN [Concomitant]
     Active Substance: ACETAMINOPHEN
     Dosage: 1200 MG
     Route: 048
  11. TOCOPHERYL NICOTINATE, D-.ALPHA. [Concomitant]
     Active Substance: TOCOPHERYL NICOTINATE, D-.ALPHA.
     Dosage: 600 MG
     Route: 048
  12. SENNOSIDES [Concomitant]
     Active Substance: SENNOSIDES
     Dosage: 0.15 MG
     Route: 048
  13. AMLODIPINE [Concomitant]
     Active Substance: AMLODIPINE BESYLATE
     Dosage: 5 MG
     Route: 048
  14. POLAPREZINC [Concomitant]
     Active Substance: POLAPREZINC
     Dosage: 150 MG
     Route: 048

REACTIONS (1)
  - Death [Fatal]

NARRATIVE: CASE EVENT DATE: 20231105
